FAERS Safety Report 9916896 (Version 1)
Quarter: 2014Q1

REPORT INFORMATION
  Report Type: Spontaneous
  Country: IT (occurrence: IT)
  Receive Date: 20140221
  Receipt Date: 20140221
  Transmission Date: 20141002
  Serious: Yes (Life-Threatening)
  Sender: FDA-Public Use
  Company Number: PHHY2014IT017861

PATIENT
  Age: 73 Year
  Sex: Male

DRUGS (10)
  1. KETOPROFEN [Suspect]
     Indication: PAIN
     Dosage: 100 MG, QD
     Route: 048
     Dates: start: 20140119, end: 20140126
  2. QUINAPRIL [Suspect]
     Dosage: 10 MG, QD
     Route: 048
     Dates: start: 20140115, end: 20140126
  3. LASIX [Concomitant]
     Indication: POLYURIA
     Dosage: 500 MG, UNK
     Route: 048
  4. TIKLID [Concomitant]
     Indication: ANTICOAGULANT THERAPY
     Dosage: 500 MG, UNK
     Route: 048
  5. LOPRESOR [Concomitant]
     Indication: HYPERTENSION
     Dosage: 200 MG, UNK
     Route: 048
  6. LUVION [Concomitant]
     Indication: POLYURIA
     Dosage: 100 MG, UNK
     Route: 048
  7. MITTOVAL [Concomitant]
     Indication: BENIGN PROSTATIC HYPERPLASIA
     Dosage: 10 MG, UNK
     Route: 048
  8. CORLENTOR [Concomitant]
     Dosage: 7.5 MG, UNK
     Route: 048
  9. OXYCODONE [Concomitant]
     Indication: PAIN
     Dosage: 50 MG, UNK
     Route: 048
  10. METFORMIN [Concomitant]
     Indication: HYPERGLYCAEMIA
     Dosage: 500 MG, UNK
     Route: 048

REACTIONS (2)
  - Renal failure acute [Recovered/Resolved]
  - Hyperkalaemia [Recovered/Resolved]
